FAERS Safety Report 24735191 (Version 1)
Quarter: 2024Q4

REPORT INFORMATION
  Report Type: Spontaneous
  Country: US (occurrence: None)
  Receive Date: 20241215
  Receipt Date: 20241215
  Transmission Date: 20250115
  Serious: Yes (Other)
  Sender: MAIA PHARMACEUTICALS
  Company Number: US-MAIA Pharmaceuticals, Inc.-MAI202412-000099

PATIENT
  Age: 28 Year
  Sex: Female

DRUGS (3)
  1. BACLOFEN [Suspect]
     Active Substance: BACLOFEN
     Indication: Quadriparesis
     Dosage: 630 MCG/DIE
     Route: 037
  2. LACOSAMIDE [Concomitant]
     Active Substance: LACOSAMIDE
     Indication: Product used for unknown indication
     Dosage: 100 MG
     Route: 065
  3. BRIVARACETAM [Concomitant]
     Active Substance: BRIVARACETAM
     Indication: Product used for unknown indication
     Dosage: 100 MG
     Route: 065

REACTIONS (1)
  - Central sleep apnoea syndrome [Recovered/Resolved]
